FAERS Safety Report 17771208 (Version 1)
Quarter: 2020Q2

REPORT INFORMATION
  Report Type: Spontaneous
  Country: DE (occurrence: DE)
  Receive Date: 20200512
  Receipt Date: 20200512
  Transmission Date: 20200714
  Serious: Yes (Hospitalization)
  Sender: FDA-Public Use
  Company Number: DE-MYLANLABS-2020M1045706

PATIENT
  Age: 58 Year
  Sex: Male

DRUGS (16)
  1. CODEIN [Suspect]
     Active Substance: CODEINE
     Indication: PRODUCT USED FOR UNKNOWN INDICATION
     Dosage: 2-2-2-2
  2. CHININ [Suspect]
     Active Substance: QUININE HYDROCHLORIDE
     Indication: PRODUCT USED FOR UNKNOWN INDICATION
     Dosage: 165.74 MG, BEDARF
  3. PANTOPRAZOL                        /01263201/ [Concomitant]
     Active Substance: PANTOPRAZOLE
     Dosage: 40 MG, 1-0-0-0
  4. MAGNESIUM [Concomitant]
     Active Substance: MAGNESIUM
     Dosage: 300 MG, 1-0-1-0
  5. COLCHICIN [Concomitant]
     Active Substance: COLCHICINE
     Dosage: 0.5 MG, ABGESETZT AM 13022020
     Dates: end: 20200213
  6. ACETYLSALICYLIC ACID [Suspect]
     Active Substance: ASPIRIN
     Indication: PRODUCT USED FOR UNKNOWN INDICATION
     Dosage: 100 MG, 0-1-0-0
  7. QUETIAPIN [Concomitant]
     Active Substance: QUETIAPINE
     Dosage: 25 MG, 0-0-0-1
  8. NALOXONE HYDROCHLORIDE W/TILIDINE HYDROCHLORI [Concomitant]
     Active Substance: NALOXONE HYDROCHLORIDE\TILIDINE HYDROCHLORIDE
     Dosage: 8|100 MG, BEDARF
  9. BRIMONIDINA [Concomitant]
     Dosage: 1-0-1-0, TROPFEN
     Route: 047
  10. METOPROLOL. [Concomitant]
     Active Substance: METOPROLOL
     Dosage: 47.5 MG, 1-0-1-0
  11. PREDNISOLONE. [Suspect]
     Active Substance: PREDNISOLONE
     Indication: PRODUCT USED FOR UNKNOWN INDICATION
     Dosage: 5 MG, NACH SCHEMA
  12. TRIMBOW [Concomitant]
     Active Substance: BECLOMETHASONE DIPROPIONATE\FORMOTEROL FUMARATE\GLYCOPYRROLATE
     Dosage: 87|11|5 MG, 2-0-2-0
  13. SIMVASTATIN. [Concomitant]
     Active Substance: SIMVASTATIN
     Dosage: 40 MG, 0-0-0.5-0
  14. SALBUTAMOL [Concomitant]
     Active Substance: ALBUTEROL
     Dosage: 5, TROPFEN
     Route: 055
  15. PHENPROCOUMON [Suspect]
     Active Substance: PHENPROCOUMON
     Indication: PRODUCT USED FOR UNKNOWN INDICATION
     Dosage: 3 MG, NACH INR
  16. ALLOPURINOL. [Concomitant]
     Active Substance: ALLOPURINOL
     Dosage: 300 MG, 1-0-1-0

REACTIONS (3)
  - Pericardial effusion [Unknown]
  - Pruritus [Unknown]
  - Dyspnoea [Unknown]
